FAERS Safety Report 7047343-3 (Version None)
Quarter: 2010Q4

REPORT INFORMATION
  Report Type: 
  Country: None (occurrence: None)
  Receive Date: 20101015
  Receipt Date: 20101008
  Transmission Date: 20110411
  Serious: Yes (Death)
  Sender: FDA-Public Use
  Company Number: PHHY2010BR68223

PATIENT
  Sex: Female

DRUGS (5)
  1. GALVUS [Suspect]
     Dosage: UNK
  2. GALVUS MET [Suspect]
  3. LESCOL XL [Suspect]
  4. DRUG USED IN DIABETES [Concomitant]
  5. MEDICATIONS FOR BLOOD PRESSURE [Concomitant]

REACTIONS (1)
  - DEATH [None]
